FAERS Safety Report 9521643 (Version 2)
Quarter: 2013Q3

REPORT INFORMATION
  Report Type: Report from Study
  Country: JP (occurrence: JP)
  Receive Date: 20130913
  Receipt Date: 20130923
  Transmission Date: 20140515
  Serious: Yes (Other)
  Sender: FDA-Public Use
  Company Number: JP-ASTELLAS-2013JP009358

PATIENT
  Age: 69 Year
  Sex: Female

DRUGS (1)
  1. MIRABEGRON [Suspect]
     Indication: HYPERTONIC BLADDER
     Dosage: 50 MG, UID/QD
     Route: 048
     Dates: start: 20130220, end: 20130423

REACTIONS (2)
  - Ventricular extrasystoles [Unknown]
  - ECG signs of ventricular hypertrophy [Unknown]
